FAERS Safety Report 7728936-4 (Version None)
Quarter: 2011Q3

REPORT INFORMATION
  Report Type: 
  Country: None (occurrence: None)
  Receive Date: 20110831
  Receipt Date: 20110831
  Transmission Date: 20111222
  Serious: Yes (Other)
  Sender: FDA-Public Use
  Company Number: None

PATIENT
  Sex: Female
  Weight: 88.905 kg

DRUGS (1)
  1. PRADAXA [Suspect]
     Indication: ANTICOAGULANT THERAPY
     Dosage: 150 MG 2 X DAY APRIL - JULY

REACTIONS (4)
  - RASH [None]
  - WEIGHT DECREASED [None]
  - PRURITUS [None]
  - OEDEMA PERIPHERAL [None]
